FAERS Safety Report 6902328-X (Version None)
Quarter: 2010Q3

REPORT INFORMATION
  Report Type: 
  Country: None (occurrence: None)
  Receive Date: 20100803
  Receipt Date: 20080510
  Transmission Date: 20110219
  Serious: No
  Sender: FDA-Public Use
  Company Number: US-PFIZER INC-2008028500

PATIENT
  Sex: Male
  Weight: 109.1 kg

DRUGS (1)
  1. LYRICA [Suspect]
     Indication: NEUROPATHY PERIPHERAL
     Dates: start: 20080324, end: 20080325

REACTIONS (3)
  - CHILLS [None]
  - DYSPNOEA [None]
  - FEELING ABNORMAL [None]
